FAERS Safety Report 12407485 (Version 2)
Quarter: 2016Q2

REPORT INFORMATION
  Report Type: Spontaneous
  Country: FR (occurrence: FR)
  Receive Date: 20160526
  Receipt Date: 20160602
  Transmission Date: 20160815
  Serious: Yes (Other)
  Sender: FDA-Public Use
  Company Number: FR-ASTRAZENECA-2016SE54921

PATIENT
  Age: 85 Year
  Sex: Female

DRUGS (2)
  1. FASLODEX [Suspect]
     Active Substance: FULVESTRANT
     Indication: BREAST CANCER METASTATIC
     Dosage: 500 MG DAY 0, DAY 15, DAY 28 AND EVERY MONTH
     Route: 030
     Dates: start: 201404
  2. CLARYTINE [Concomitant]
     Dosage: AS REQUIRED

REACTIONS (6)
  - Dyspnoea at rest [Recovered/Resolved]
  - Injection site pain [Recovered/Resolved]
  - Neck pain [Recovered/Resolved]
  - Dysphonia [Not Recovered/Not Resolved]
  - Malaise [Recovered/Resolved]
  - Oropharyngeal discomfort [Recovered/Resolved]

NARRATIVE: CASE EVENT DATE: 201404
